FAERS Safety Report 4981216-2 (Version None)
Quarter: 2006Q1

REPORT INFORMATION
  Report Type: 
  Country: None (occurrence: None)
  Receive Date: 20060224
  Receipt Date: 20060105
  Transmission Date: 20060701
  Serious: No
  Sender: FDA-Public Use
  Company Number: 2006US002798

PATIENT
  Age: 41 Year
  Sex: Female
  Weight: 54.4 kg

DRUGS (11)
  1. ALOXI [Suspect]
     Indication: PROPHYLAXIS OF NAUSEA AND VOMITING
     Dosage: 0.25 MG, SINGLE,IV BOLUS
     Route: 040
     Dates: start: 20051105, end: 20051105
  2. ALOXI [Suspect]
     Indication: PROPHYLAXIS OF NAUSEA AND VOMITING
     Dosage: 0.25 MG, SINGLE,IV BOLUS
     Route: 040
     Dates: start: 20051126, end: 20051126
  3. ALOXI [Suspect]
     Indication: PROPHYLAXIS OF NAUSEA AND VOMITING
     Dosage: 0.25 MG, SINGLE,IV BOLUS
     Route: 040
     Dates: start: 20051217, end: 20051217
  4. FLUOROURACIL [Suspect]
     Indication: BREAST CANCER
     Dosage: Q3WK, INTRAVENOUS
     Route: 042
     Dates: start: 20051105
  5. DEXAMETHASONE [Concomitant]
  6. EPIRUBICIN [Suspect]
     Indication: BREAST CANCER
     Dosage: Q3WK, INTRAVENOUS
     Route: 042
     Dates: start: 20051105
  7. CYTOXAN [Suspect]
     Indication: BREAST CANCER
     Dosage: Q3WK, INTRAVENOUS
     Route: 042
     Dates: start: 20051105
  8. ATIVAN (LOREZEPAM) [Concomitant]
  9. THYROXIN (LEVOTHYROXINE SODIUM) [Concomitant]
  10. ESZOPICLONE (ESZOPICLONE) [Concomitant]
  11. ZOLOFT [Concomitant]

REACTIONS (5)
  - DRUG INEFFECTIVE [None]
  - DYSPEPSIA [None]
  - HEADACHE [None]
  - RETCHING [None]
  - VOMITING [None]
